FAERS Safety Report 6420009-6 (Version None)
Quarter: 2009Q4

REPORT INFORMATION
  Report Type: 
  Country: None (occurrence: None)
  Receive Date: 20091029
  Receipt Date: 20091027
  Transmission Date: 20100525
  Serious: Yes (Other)
  Sender: FDA-Public Use
  Company Number: US-TEVA-213531USA

PATIENT
  Sex: Female

DRUGS (1)
  1. METRONIDAZOLE [Suspect]

REACTIONS (1)
  - LONG QT SYNDROME [None]
